FAERS Safety Report 9763047 (Version 2)
Quarter: 2014Q1

REPORT INFORMATION
  Report Type: Spontaneous
  Country: US (occurrence: US)
  Receive Date: 20131216
  Receipt Date: 20140303
  Transmission Date: 20141002
  Serious: No
  Sender: FDA-Public Use
  Company Number: US-BIOGENIDEC-2013BI105325

PATIENT
  Age: 64 Year
  Sex: Female

DRUGS (11)
  1. TECFIDERA [Suspect]
     Indication: MULTIPLE SCLEROSIS
     Route: 048
     Dates: start: 201309
  2. PATANASE [Concomitant]
  3. TRAMADOL [Concomitant]
  4. LYRICA [Concomitant]
  5. VITAMIN D [Concomitant]
  6. ZOLPIDEM [Concomitant]
  7. PROVIGIL [Concomitant]
  8. ESTRADIOL [Concomitant]
  9. LISINOPRIL [Concomitant]
  10. LEVOTHYROXINE SODIUM [Concomitant]
  11. LIPITOR [Concomitant]

REACTIONS (6)
  - Headache [Unknown]
  - Nasopharyngitis [Not Recovered/Not Resolved]
  - Flushing [Unknown]
  - Feeling hot [Unknown]
  - Diarrhoea [Unknown]
  - Abdominal pain upper [Unknown]
